FAERS Safety Report 7455979-0 (Version None)
Quarter: 2011Q2

REPORT INFORMATION
  Report Type: 
  Country: None (occurrence: None)
  Receive Date: 20110503
  Receipt Date: 20110426
  Transmission Date: 20111010
  Serious: Yes (Hospitalization, Other)
  Sender: FDA-Public Use
  Company Number: US-MERCK-0707USA02677

PATIENT
  Age: 53 Year
  Sex: Female
  Weight: 56 kg

DRUGS (2)
  1. FOSAMAX [Suspect]
     Indication: OSTEOPOROSIS
     Route: 048
     Dates: start: 20041001, end: 20050601
  2. FOSAMAX [Suspect]
     Indication: HIP FRACTURE
     Route: 048
     Dates: start: 20041001, end: 20050601

REACTIONS (66)
  - PHARYNGITIS [None]
  - INTERMITTENT CLAUDICATION [None]
  - EPISTAXIS [None]
  - DIABETES MELLITUS [None]
  - HYPOTHYROIDISM [None]
  - ALOPECIA [None]
  - TRANSIENT ISCHAEMIC ATTACK [None]
  - SYNCOPE [None]
  - KIDNEY INFECTION [None]
  - GENITAL DISORDER FEMALE [None]
  - BREAST DISORDER [None]
  - CLAVICLE FRACTURE [None]
  - CARDIAC FAILURE [None]
  - HIP FRACTURE [None]
  - HYPERTENSIVE HEART DISEASE [None]
  - CORONARY ARTERY DISEASE [None]
  - SPINAL COMPRESSION FRACTURE [None]
  - HEAD INJURY [None]
  - ANGIOPATHY [None]
  - STOMATITIS [None]
  - LEUKOPLAKIA [None]
  - PERIODONTITIS [None]
  - OSTEONECROSIS OF JAW [None]
  - LEFT ATRIAL DILATATION [None]
  - LOSS OF CONSCIOUSNESS [None]
  - OPEN WOUND [None]
  - GINGIVAL DISORDER [None]
  - FIBROMA [None]
  - FACE INJURY [None]
  - FALL [None]
  - OSTEOMYELITIS [None]
  - LOWER LIMB FRACTURE [None]
  - ENTHESOPATHY [None]
  - FIBROCYSTIC BREAST DISEASE [None]
  - CONTUSION [None]
  - HYPERLIPIDAEMIA [None]
  - RIB FRACTURE [None]
  - PHARYNGEAL HAEMORRHAGE [None]
  - NECK INJURY [None]
  - LOW DENSITY LIPOPROTEIN INCREASED [None]
  - SKIN ULCER [None]
  - SPINAL OSTEOARTHRITIS [None]
  - ANAEMIA POSTOPERATIVE [None]
  - CARDIOMEGALY [None]
  - DIZZINESS [None]
  - HEADACHE [None]
  - OEDEMA [None]
  - INFLUENZA [None]
  - FEMUR FRACTURE [None]
  - VITAMIN D DEFICIENCY [None]
  - LICHEN PLANUS [None]
  - OSTEONECROSIS [None]
  - DEAFNESS NEUROSENSORY [None]
  - HYPERKERATOSIS [None]
  - GOITRE [None]
  - GINGIVAL INFECTION [None]
  - WEIGHT DECREASED [None]
  - MALIGNANT HYPERTENSION [None]
  - LICHENIFICATION [None]
  - FACIAL BONES FRACTURE [None]
  - FOREIGN BODY [None]
  - ARTHRALGIA [None]
  - CHEST PAIN [None]
  - GINGIVAL PAIN [None]
  - HYPOXIA [None]
  - FRACTURE NONUNION [None]
